FAERS Safety Report 9223680 (Version 1)
Quarter: 2013Q2

REPORT INFORMATION
  Report Type: Report from Study
  Country: US (occurrence: US)
  Receive Date: 20130410
  Receipt Date: 20130410
  Transmission Date: 20140414
  Serious: Yes (Hospitalization)
  Sender: FDA-Public Use
  Company Number: PHHY2013US031740

PATIENT
  Age: 46 Year
  Sex: Male
  Weight: 67 kg

DRUGS (12)
  1. EVEROLIMUS [Suspect]
     Indication: PANCREATIC NEUROENDOCRINE TUMOUR
     Dosage: 10 MG, QD
     Route: 048
     Dates: start: 20121008
  2. OCTREOTIDE ACETATE SANDOZ [Suspect]
     Indication: PANCREATIC NEUROENDOCRINE TUMOUR
     Dosage: 20 MG, UNK
     Route: 030
     Dates: start: 20121008
  3. BEVACIZUMAB [Suspect]
     Indication: PANCREATIC NEUROENDOCRINE TUMOUR
     Dosage: UNK
     Route: 042
     Dates: start: 20121008
  4. ADDERALL XR [Concomitant]
  5. COLACE [Concomitant]
  6. CREON [Concomitant]
  7. GLYCERIN [Concomitant]
  8. LEXAPRO [Concomitant]
  9. METHADONE [Concomitant]
  10. MIRALAX [Concomitant]
  11. NEURONTIN [Concomitant]
  12. OXYCODONE [Concomitant]

REACTIONS (1)
  - Back pain [Recovered/Resolved]
